FAERS Safety Report 5974887-5 (Version None)
Quarter: 2008Q4

REPORT INFORMATION
  Report Type: 
  Country: None (occurrence: None)
  Receive Date: 20081202
  Receipt Date: 20081122
  Transmission Date: 20090506
  Serious: Yes (Other)
  Sender: FDA-Public Use
  Company Number: US-PFIZER INC-2008099090

PATIENT
  Sex: Female
  Weight: 85 kg

DRUGS (10)
  1. REVATIO [Suspect]
     Indication: PULMONARY HYPERTENSION
     Route: 048
     Dates: start: 20070101
  2. GABAPENTIN [Concomitant]
  3. LOMOTIL [Concomitant]
  4. POTASSIUM CHLORIDE [Concomitant]
  5. ZOLOFT [Concomitant]
  6. FENTANYL-100 [Concomitant]
  7. COUMADIN [Concomitant]
  8. SOMA [Concomitant]
  9. LORTAB [Concomitant]
  10. DIURETICS [Concomitant]

REACTIONS (6)
  - EXOPHTHALMOS [None]
  - EYE IRRITATION [None]
  - FOREIGN BODY SENSATION IN EYES [None]
  - OCULAR HYPERAEMIA [None]
  - VISUAL ACUITY REDUCED [None]
  - VISUAL FIELD DEFECT [None]
